FAERS Safety Report 11183467 (Version 3)
Quarter: 2015Q4

REPORT INFORMATION
  Report Type: Spontaneous
  Country: US (occurrence: US)
  Receive Date: 20150612
  Receipt Date: 20151028
  Transmission Date: 20160304
  Serious: No
  Sender: FDA-Public Use
  Company Number: US-LEO PHARMA-234640

PATIENT
  Sex: Male

DRUGS (1)
  1. PICATO [Suspect]
     Active Substance: INGENOL MEBUTATE
     Indication: PRECANCEROUS SKIN LESION
     Route: 061

REACTIONS (5)
  - Application site dryness [Recovered/Resolved]
  - Inappropriate schedule of drug administration [Unknown]
  - Application site discolouration [Recovering/Resolving]
  - Application site scab [Recovered/Resolved]
  - Incorrect product storage [Unknown]
